FAERS Safety Report 9148773 (Version 4)
Quarter: 2013Q2

REPORT INFORMATION
  Report Type: Spontaneous
  Country: GR (occurrence: GR)
  Receive Date: 20130308
  Receipt Date: 20130530
  Transmission Date: 20140414
  Serious: Yes (Hospitalization, Other)
  Sender: FDA-Public Use
  Company Number: GR-AMGEN-GRCSP2013014002

PATIENT
  Age: 78 Year
  Sex: Female

DRUGS (5)
  1. PROLIA [Suspect]
     Indication: OSTEOPOROSIS
     Dosage: 60 MG, Q6MO
     Route: 058
     Dates: start: 201007, end: 201107
  2. CORTISONE [Concomitant]
     Dosage: UNK
     Dates: start: 2005
  3. AZATHIOPRINE [Concomitant]
     Indication: PEMPHIGUS
     Dosage: UNK
     Dates: start: 2008
  4. MEDROL                             /00049601/ [Concomitant]
     Indication: PEMPHIGUS
     Dosage: 16 MG, QD
     Route: 048
     Dates: start: 2002, end: 2010
  5. ALENDRONATE [Concomitant]
     Indication: OSTEOPOROSIS

REACTIONS (1)
  - Osteonecrosis of jaw [Recovered/Resolved]
